FAERS Safety Report 24414643 (Version 1)
Quarter: 2024Q4

REPORT INFORMATION
  Report Type: Spontaneous
  Country: US (occurrence: US)
  Receive Date: 20241009
  Receipt Date: 20241009
  Transmission Date: 20250115
  Serious: Yes (Other)
  Sender: ALKEM
  Company Number: None

PATIENT
  Age: 6 Decade
  Sex: Male

DRUGS (3)
  1. OLANZAPINE [Suspect]
     Active Substance: OLANZAPINE
     Indication: Initial insomnia
     Dosage: 5 MILLIGRAM, QD (EVERY 1 DAY NIGHTLY)
     Route: 048
  2. TAMSULOSIN HYDROCHLORIDE [Suspect]
     Active Substance: TAMSULOSIN HYDROCHLORIDE
     Indication: Nocturia
     Dosage: UNK
     Route: 065
  3. TAMSULOSIN HYDROCHLORIDE [Suspect]
     Active Substance: TAMSULOSIN HYDROCHLORIDE
     Indication: Urine flow decreased

REACTIONS (3)
  - Hyperprolactinaemia [Unknown]
  - Pollakiuria [Recovered/Resolved]
  - Off label use [Unknown]
